FAERS Safety Report 24972118 (Version 1)
Quarter: 2025Q1

REPORT INFORMATION
  Report Type: Spontaneous
  Country: CN (occurrence: CN)
  Receive Date: 20250214
  Receipt Date: 20250214
  Transmission Date: 20250409
  Serious: Yes (Other)
  Sender: NOVARTIS
  Company Number: CN-002147023-NVSC2025CN022780

PATIENT
  Age: 75 Year
  Sex: Female
  Weight: 65 kg

DRUGS (2)
  1. HYDROCHLOROTHIAZIDE\VALSARTAN [Suspect]
     Active Substance: HYDROCHLOROTHIAZIDE\VALSARTAN
     Indication: Hypertension
     Dosage: 1.000 DOSAGE FORM, QD
     Route: 048
     Dates: start: 20240101, end: 20250202
  2. HYDROCHLOROTHIAZIDE\VALSARTAN [Suspect]
     Active Substance: HYDROCHLOROTHIAZIDE\VALSARTAN
     Dosage: 80 MG, QD
     Route: 048
     Dates: start: 20250131

REACTIONS (15)
  - Hypokalaemia [Recovered/Resolved]
  - Pneumonitis [Unknown]
  - Aortic arteriosclerosis [Unknown]
  - Dizziness [Recovering/Resolving]
  - Chest pain [Recovered/Resolved]
  - Cough [Unknown]
  - Gamma-glutamyltransferase increased [Unknown]
  - High density lipoprotein increased [Unknown]
  - Blood magnesium decreased [Unknown]
  - Carbon dioxide combining power increased [Unknown]
  - Electrocardiogram abnormal [Unknown]
  - Electrocardiogram T wave abnormal [Unknown]
  - Hepatic cyst [Unknown]
  - Intervertebral disc degeneration [Unknown]
  - Spinal instability [Unknown]

NARRATIVE: CASE EVENT DATE: 20250131
